FAERS Safety Report 5962546-4 (Version None)
Quarter: 2008Q4

REPORT INFORMATION
  Report Type: 
  Country: None (occurrence: None)
  Receive Date: 20081121
  Receipt Date: 20081117
  Transmission Date: 20090506
  Serious: Yes (Life-Threatening)
  Sender: FDA-Public Use
  Company Number: PHHY2008EG28456

PATIENT
  Sex: Male
  Weight: 87 kg

DRUGS (5)
  1. VOLTAREN [Suspect]
     Indication: ABDOMINAL PAIN
     Dosage: 1 AMP
     Dates: start: 20080922
  2. MEPERIDINE HCL [Suspect]
     Route: 042
  3. METOCLOPRAMIDE [Concomitant]
     Route: 042
  4. RANITIDINE [Concomitant]
     Route: 042
  5. CEFOTAXIME SODIUM [Concomitant]
     Route: 042

REACTIONS (1)
  - SHOCK [None]
